FAERS Safety Report 18207808 (Version 2)
Quarter: 2020Q3

REPORT INFORMATION
  Report Type: Spontaneous
  Country: US (occurrence: US)
  Receive Date: 20200828
  Receipt Date: 20200924
  Transmission Date: 20201103
  Serious: Yes (Other)
  Sender: FDA-Public Use
  Company Number: US-HORMOSAN PHARMA GMBH-2020-05002

PATIENT
  Age: 55 Year
  Sex: Male
  Weight: 68.04 kg

DRUGS (5)
  1. LEVETIRACETAM TABLETS [Suspect]
     Active Substance: LEVETIRACETAM
     Indication: SEIZURE
     Dosage: 250 MILLIGRAM, UNK
     Route: 048
     Dates: start: 201902
  2. CARBAMAZEPINE. [Suspect]
     Active Substance: CARBAMAZEPINE
     Indication: SEIZURE
     Dosage: 1.5 DOSAGE FORM, BID ((300 MG EACH)
     Route: 048
  3. TIMOLOL. [Concomitant]
     Active Substance: TIMOLOL
     Indication: GLAUCOMA
     Dosage: 1 DROP IN EACH EYE EVERY MORNING
     Route: 047
  4. LATANOPROST. [Suspect]
     Active Substance: LATANOPROST
     Indication: GLAUCOMA
     Dosage: 1 DROP IN EACH EYE BEFORE BED
     Route: 047
  5. LEVETIRACETAM TABLETS [Suspect]
     Active Substance: LEVETIRACETAM
     Dosage: 500 MILLIGRAM, BID
     Route: 048

REACTIONS (6)
  - Seizure [Unknown]
  - Anxiety [Recovering/Resolving]
  - Confusional state [Unknown]
  - Psychomotor hyperactivity [Unknown]
  - Hallucination [Unknown]
  - Impaired work ability [Unknown]

NARRATIVE: CASE EVENT DATE: 201902
